FAERS Safety Report 8615181-3 (Version None)
Quarter: 2012Q3

REPORT INFORMATION
  Report Type: 
  Country: None (occurrence: None)
  Receive Date: 20120823
  Receipt Date: 20120816
  Transmission Date: 20120928
  Serious: Yes (Death, Life-Threatening, Disabling, Other)
  Sender: FDA-Public Use
  Company Number: IL-INCYTE CORPORATION-2012IN001493

PATIENT
  Sex: Male

DRUGS (6)
  1. INC424 [Suspect]
     Dosage: UNK
     Dates: start: 20120307
  2. LEVOTHYROXINE SODIUM [Concomitant]
  3. INC424 [Suspect]
     Indication: MYELOFIBROSIS
     Dosage: 20 MG, BID
     Route: 048
     Dates: start: 20120303
  4. PROXOL [Concomitant]
  5. RECORMON [Concomitant]
  6. FUROSEMIDE [Concomitant]

REACTIONS (4)
  - ANAEMIA [None]
  - GASTROINTESTINAL HAEMORRHAGE [None]
  - THROMBOCYTOPENIA [None]
  - SEPTIC SHOCK [None]
